FAERS Safety Report 4895260-7 (Version None)
Quarter: 2006Q1

REPORT INFORMATION
  Report Type: 
  Country: None (occurrence: None)
  Receive Date: 20060130
  Receipt Date: 20051130
  Transmission Date: 20060701
  Serious: Yes (Life-Threatening, Hospitalization)
  Sender: FDA-Public Use
  Company Number: CN-GLAXOSMITHKLINE-B0402476A

PATIENT
  Age: 17 Year
  Sex: Female

DRUGS (1)
  1. ALBENDAZOLE [Suspect]
     Indication: INFECTION PARASITIC
     Dosage: .4G PER DAY
     Route: 048
     Dates: start: 20051109, end: 20051109

REACTIONS (4)
  - HEPATITIS [None]
  - LIVER DISORDER [None]
  - OCULAR ICTERUS [None]
  - ORAL INTAKE REDUCED [None]
